FAERS Safety Report 6439033-2 (Version None)
Quarter: 2009Q4

REPORT INFORMATION
  Report Type: 
  Country: None (occurrence: None)
  Receive Date: 20091113
  Receipt Date: 20091104
  Transmission Date: 20100525
  Serious: Yes (Hospitalization)
  Sender: FDA-Public Use
  Company Number: JP-ROCHE-668129

PATIENT
  Age: 65 Year
  Sex: Male
  Weight: 60 kg

DRUGS (2)
  1. PEGASYS [Suspect]
     Indication: HEPATITIS C
     Route: 058
     Dates: start: 20090901, end: 20091001
  2. HANGE-SHASHIN-TO [Concomitant]
     Dosage: DOSE FORM: ORAL FORMULATION
     Route: 048

REACTIONS (1)
  - INTERSTITIAL LUNG DISEASE [None]
